FAERS Safety Report 6998898-6 (Version None)
Quarter: 2010Q3

REPORT INFORMATION
  Report Type: 
  Country: None (occurrence: None)
  Receive Date: 20100920
  Receipt Date: 20100204
  Transmission Date: 20110219
  Serious: No
  Sender: FDA-Public Use
  Company Number: US-ASTRAZENECA-2010SE05484

PATIENT
  Sex: Female
  Weight: 54.4 kg

DRUGS (3)
  1. SEROQUEL [Suspect]
     Indication: BIPOLAR DISORDER
     Route: 048
     Dates: start: 20070101, end: 20090101
  2. LAMICTAL [Concomitant]
     Indication: BIPOLAR DISORDER
  3. LITHIUM CARBONATE [Concomitant]
     Indication: BIPOLAR DISORDER

REACTIONS (5)
  - AMNESIA [None]
  - DYSKINESIA [None]
  - FALL [None]
  - HYPERPHAGIA [None]
  - WEIGHT DECREASED [None]
